FAERS Safety Report 11074350 (Version 1)
Quarter: 2015Q2

REPORT INFORMATION
  Report Type: Spontaneous
  Country: US (occurrence: None)
  Receive Date: 20150428
  Receipt Date: 20150428
  Transmission Date: 20150821
  Serious: Yes (Life-Threatening)
  Sender: FDA-Public Use
  Company Number: None

PATIENT
  Age: 67 Year
  Sex: Male
  Weight: 90.72 kg

DRUGS (19)
  1. MAGNESIUM [Concomitant]
     Active Substance: MAGNESIUM
  2. OMEPRAZOLE. [Concomitant]
     Active Substance: OMEPRAZOLE
  3. GARLIC SUPPLEMENT [Concomitant]
  4. GADOLINIUM [Suspect]
     Active Substance: GADOLINIUM
     Indication: SCAN WITH CONTRAST
  5. FISH OIL W/OMEGA 3 [Concomitant]
  6. METOTOPROL SUCCINATE ER [Concomitant]
  7. D3 [Concomitant]
     Active Substance: 25-HYDROXYCHOLECALCIFEROL, 5-TRANS-
  8. PROBIOTICS [Concomitant]
     Active Substance: PROBIOTICS NOS
  9. ASPIRIN. [Concomitant]
     Active Substance: ASPIRIN
  10. FLAX SEED [Concomitant]
     Active Substance: FLAX SEED
  11. ATORVISTATIN [Concomitant]
  12. RENAFOOD [Concomitant]
  13. RENATROPIN [Concomitant]
  14. CRANBERRY. [Concomitant]
     Active Substance: CRANBERRY
  15. VITAMIN B COMPLEX [Concomitant]
     Active Substance: CYANOCOBALAMIN\DEXPANTHENOL\NIACINAMIDE\PYRIDOXINE HYDROCHLORIDE\RIBOFLAVIN 5^-PHOSPHATE SODIUM\THIAMINE HYDROCHLORIDE\VITAMIN B COMPLEX
  16. DIGESTIVE ENZYMES [Concomitant]
     Active Substance: UNSPECIFIED INGREDIENT
  17. GADOLINIUM [Suspect]
     Active Substance: GADOLINIUM
     Indication: NUCLEAR MAGNETIC RESONANCE IMAGING
  18. LEVOTHYROXINE [Concomitant]
     Active Substance: LEVOTHYROXINE
  19. SULCRAFATE [Concomitant]

REACTIONS (5)
  - Renal impairment [None]
  - Drug level increased [None]
  - Toxicity to various agents [None]
  - Nephropathy toxic [None]
  - Blood creatinine increased [None]

NARRATIVE: CASE EVENT DATE: 20150427
